FAERS Safety Report 4423577-9 (Version None)
Quarter: 2004Q3

REPORT INFORMATION
  Report Type: 
  Country: None (occurrence: None)
  Receive Date: 20040719
  Receipt Date: 20040504
  Transmission Date: 20050211
  Serious: Yes (Death, Life-Threatening)
  Sender: FDA-Public Use
  Company Number: M04-INT-076

PATIENT
  Sex: Female

DRUGS (1)
  1. INTEGRILIN [Suspect]
     Indication: CORONARY ANGIOPLASTY

REACTIONS (6)
  - CARDIO-RESPIRATORY ARREST [None]
  - CONTUSION [None]
  - HAEMATOMA [None]
  - HAEMORRHAGE [None]
  - RESPIRATORY DISTRESS [None]
  - RETROPERITONEAL HAEMORRHAGE [None]
